FAERS Safety Report 7572104-6 (Version None)
Quarter: 2011Q2

REPORT INFORMATION
  Report Type: 
  Country: None (occurrence: None)
  Receive Date: 20110624
  Receipt Date: 20110615
  Transmission Date: 20111010
  Serious: Yes (Hospitalization, Other)
  Sender: FDA-Public Use
  Company Number: GB-ASTRAZENECA-2011SE34972

PATIENT
  Age: 56 Year
  Sex: Female
  Weight: 109 kg

DRUGS (7)
  1. SEROQUEL [Suspect]
     Indication: MENTAL DISORDER
     Route: 048
  2. ASPIRIN [Concomitant]
     Indication: CARDIOVASCULAR EVENT PROPHYLAXIS
  3. SIMVASTATIN [Concomitant]
     Indication: HYPERCHOLESTEROLAEMIA
  4. MATFAMIN [Concomitant]
     Indication: DIABETES MELLITUS
     Route: 048
  5. DIAMICRON MR [Concomitant]
     Indication: DIABETES MELLITUS
  6. SITAGLIPTIN [Concomitant]
     Indication: DIABETES MELLITUS
  7. SEROQUEL [Suspect]
     Indication: BIPOLAR DISORDER
     Route: 048

REACTIONS (4)
  - OBESITY [None]
  - DIABETES MELLITUS [None]
  - GASTRIC BANDING [None]
  - WRONG TECHNIQUE IN DRUG USAGE PROCESS [None]
